FAERS Safety Report 5842318-1 (Version None)
Quarter: 2008Q3

REPORT INFORMATION
  Report Type: 
  Country: None (occurrence: None)
  Receive Date: 20080812
  Receipt Date: 20080804
  Transmission Date: 20090109
  Serious: Yes (Hospitalization)
  Sender: FDA-Public Use
  Company Number: JP-ABBOTT-08P-087-0458050-00

PATIENT
  Sex: Male
  Weight: 21.9 kg

DRUGS (8)
  1. CEFDINIR [Suspect]
     Indication: UPPER RESPIRATORY TRACT INFLAMMATION
     Route: 048
     Dates: start: 20080514, end: 20080515
  2. ZONISAMIDE [Suspect]
     Indication: EPILEPSY
     Route: 048
     Dates: start: 20080420, end: 20080507
  3. ZONISAMIDE [Suspect]
     Route: 048
     Dates: start: 20080508, end: 20080515
  4. ZONISAMIDE [Suspect]
     Route: 048
     Dates: start: 20080517, end: 20080520
  5. CARBAMAZEPINE [Suspect]
     Indication: EPILEPSY
     Route: 048
     Dates: start: 20071221, end: 20080515
  6. TIPEPIDINE HIBENZATE [Concomitant]
     Indication: DRUG USE FOR UNKNOWN INDICATION
     Dates: start: 20080514, end: 20080515
  7. CARBOCISTEINE [Concomitant]
     Indication: DRUG USE FOR UNKNOWN INDICATION
     Dosage: FINE GRANULE
     Dates: start: 20080514, end: 20080515
  8. PARACETAMOL [Concomitant]
     Indication: DRUG USE FOR UNKNOWN INDICATION
     Dosage: FINE GRANULE
     Dates: start: 20080514, end: 20080515

REACTIONS (1)
  - STEVENS-JOHNSON SYNDROME [None]
